FAERS Safety Report 19733179 (Version 2)
Quarter: 2021Q3

REPORT INFORMATION
  Report Type: Spontaneous
  Country: TW (occurrence: TW)
  Receive Date: 20210823
  Receipt Date: 20210823
  Transmission Date: 20211014
  Serious: Yes (Other)
  Sender: FDA-Public Use
  Company Number: TW-009507513-2108TWN004289

PATIENT
  Age: 59 Year
  Sex: Male

DRUGS (1)
  1. KEYTRUDA [Suspect]
     Active Substance: PEMBROLIZUMAB
     Indication: TRANSITIONAL CELL CARCINOMA
     Dosage: 100 MG, Q3W
     Route: 041
     Dates: start: 20201102, end: 20210615

REACTIONS (2)
  - Bladder fibrosis [Unknown]
  - Cystitis [Unknown]

NARRATIVE: CASE EVENT DATE: 20210707
